FAERS Safety Report 9799780 (Version 3)
Quarter: 2015Q3

REPORT INFORMATION
  Report Type: Spontaneous
  Country: US (occurrence: US)
  Receive Date: 20140106
  Receipt Date: 20150806
  Transmission Date: 20151125
  Serious: No
  Sender: FDA-Public Use
  Company Number: US-GILEAD-2010-0031882

PATIENT
  Age: 74 Year
  Sex: Female
  Weight: 52.16 kg

DRUGS (14)
  1. HYDROXYCHLOROQUINE [Concomitant]
     Active Substance: HYDROXYCHLOROQUINE
  2. BIAXIN [Concomitant]
     Active Substance: CLARITHROMYCIN
  3. ASPIRIN. [Concomitant]
     Active Substance: ASPIRIN
  4. METAMUCIL [Concomitant]
     Active Substance: PLANTAGO SEED
  5. VITAMIN E [Concomitant]
     Active Substance: .ALPHA.-TOCOPHEROL
  6. PREMPRO [Concomitant]
     Active Substance: ESTROGENS, CONJUGATED\MEDROXYPROGESTERONE ACETATE
  7. PAXIL [Concomitant]
     Active Substance: PAROXETINE HYDROCHLORIDE
  8. TUMS [Concomitant]
     Active Substance: CALCIUM CARBONATE
  9. FISH OIL [Concomitant]
     Active Substance: FISH OIL
  10. NUMOISYN [Concomitant]
  11. CENTRUM ULTRA WOMENTS [Concomitant]
  12. LETAIRIS [Suspect]
     Active Substance: AMBRISENTAN
     Indication: PULMONARY ARTERIAL HYPERTENSION
     Route: 048
     Dates: start: 20081230
  13. ESTACE [Concomitant]
  14. RESTASIS [Concomitant]
     Active Substance: CYCLOSPORINE

REACTIONS (1)
  - Balance disorder [Unknown]
